FAERS Safety Report 25815670 (Version 1)
Quarter: 2025Q3

REPORT INFORMATION
  Report Type: Spontaneous
  Country: US (occurrence: US)
  Receive Date: 20250918
  Receipt Date: 20250918
  Transmission Date: 20251020
  Serious: No
  Sender: MERCK SHARP & DOHME LLC
  Company Number: US-009507513-2328824

PATIENT
  Age: 91 Year
  Sex: Female

DRUGS (1)
  1. VERICIGUAT [Suspect]
     Active Substance: VERICIGUAT
     Indication: Cardiac failure
     Route: 048
     Dates: start: 20250701, end: 20250704

REACTIONS (2)
  - Abdominal discomfort [Recovering/Resolving]
  - Insulin resistance [Recovering/Resolving]

NARRATIVE: CASE EVENT DATE: 20250704
